FAERS Safety Report 7518275-9 (Version None)
Quarter: 2011Q2

REPORT INFORMATION
  Report Type: 
  Country: None (occurrence: None)
  Receive Date: 20110601
  Receipt Date: 20110601
  Transmission Date: 20111010
  Serious: No
  Sender: FDA-Public Use
  Company Number: None

PATIENT
  Sex: Male
  Weight: 49.8957 kg

DRUGS (3)
  1. AZELASTINE [Suspect]
     Indication: SEASONAL ALLERGY
     Dosage: 1 QTT BOTH EYES BID EYED
     Dates: start: 20110529
  2. AZELASTINE [Suspect]
     Indication: SEASONAL ALLERGY
     Dosage: 1 QTT BOTH EYES BID EYED
     Dates: start: 20110527
  3. AZELASTINE [Suspect]
     Indication: SEASONAL ALLERGY
     Dosage: 1 QTT BOTH EYES BID EYED
     Dates: start: 20110528

REACTIONS (3)
  - BURNING SENSATION [None]
  - PRODUCT QUALITY ISSUE [None]
  - NO THERAPEUTIC RESPONSE [None]
